FAERS Safety Report 8830570 (Version 1)
Quarter: 2012Q4

REPORT INFORMATION
  Report Type: 
  Country: JP (occurrence: JP)
  Receive Date: 20121009
  Receipt Date: 20121009
  Transmission Date: 20130627
  Serious: Yes (Other)
  Sender: FDA-Public Use
  Company Number: JP-JNJFOC-20121003010

PATIENT
  Age: 57 Year
  Sex: Female
  Weight: 35 kg

DRUGS (1)
  1. NICORETTE FRUITYMINT [Suspect]
     Indication: SMOKING CESSATION THERAPY
     Route: 002
     Dates: start: 20120930

REACTIONS (7)
  - Muscle spasms [Recovered/Resolved]
  - Spinal pain [Recovered/Resolved]
  - Nausea [Recovered/Resolved]
  - Abdominal discomfort [Recovered/Resolved]
  - Dysgeusia [Recovered/Resolved]
  - Frequent bowel movements [Recovered/Resolved]
  - Convulsion [None]
